FAERS Safety Report 21197539 (Version 3)
Quarter: 2023Q1

REPORT INFORMATION
  Report Type: Spontaneous
  Country: US (occurrence: US)
  Receive Date: 20220810
  Receipt Date: 20230206
  Transmission Date: 20230418
  Serious: No
  Sender: FDA-Public Use
  Company Number: US-SA-SAC20220808000456

PATIENT
  Age: 12 Year
  Sex: Male

DRUGS (1)
  1. DUPIXENT [Suspect]
     Active Substance: DUPILUMAB
     Indication: Dermatitis atopic
     Dosage: 200 MG,FREQUENCY: OTHER
     Route: 058
     Dates: start: 202201

REACTIONS (4)
  - Amblyopia [Unknown]
  - Acne [Unknown]
  - Eyelid ptosis [Recovered/Resolved]
  - Eye inflammation [Unknown]

NARRATIVE: CASE EVENT DATE: 20220115
